FAERS Safety Report 5202706-3 (Version None)
Quarter: 2007Q1

REPORT INFORMATION
  Report Type: 
  Country: None (occurrence: None)
  Receive Date: 20070109
  Receipt Date: 20070102
  Transmission Date: 20070707
  Serious: Yes (Other)
  Sender: FDA-Public Use
  Company Number: BR-PFIZER INC-2006155964

PATIENT
  Sex: Female

DRUGS (2)
  1. CELEBREX [Suspect]
     Dates: start: 20061215, end: 20061218
  2. DIPYRONE INJ [Concomitant]

REACTIONS (2)
  - DERMATITIS BULLOUS [None]
  - DRUG EXPOSURE VIA BREAST MILK [None]
